FAERS Safety Report 8529365-6 (Version None)
Quarter: 2012Q3

REPORT INFORMATION
  Report Type: 
  Country: None (occurrence: None)
  Receive Date: 20120723
  Receipt Date: 20120709
  Transmission Date: 20120928
  Serious: Yes (Hospitalization, Other)
  Sender: FDA-Public Use
  Company Number: US-JNJFOC-20120704120

PATIENT
  Sex: Male
  Weight: 58.97 kg

DRUGS (4)
  1. REMICADE [Suspect]
     Dosage: SECOND DOSE
     Route: 042
     Dates: start: 19990101, end: 19990101
  2. REMICADE [Suspect]
     Indication: CROHN'S DISEASE
     Route: 042
     Dates: start: 19990101
  3. REMICADE [Suspect]
     Dosage: DOSE WAS TRIPLED
     Route: 042
     Dates: start: 20120619
  4. REMICADE [Suspect]
     Route: 042
     Dates: start: 20120501

REACTIONS (7)
  - PARAESTHESIA [None]
  - CROHN'S DISEASE [None]
  - DRUG INEFFECTIVE [None]
  - MONOPLEGIA [None]
  - PAIN IN EXTREMITY [None]
  - LUPUS-LIKE SYNDROME [None]
  - INFUSION RELATED REACTION [None]
